FAERS Safety Report 7456123-6 (Version None)
Quarter: 2011Q2

REPORT INFORMATION
  Report Type: 
  Country: None (occurrence: None)
  Receive Date: 20110503
  Receipt Date: 20110131
  Transmission Date: 20111010
  Serious: Yes (Other)
  Sender: FDA-Public Use
  Company Number: PHHY2010JP83247

PATIENT
  Sex: Female
  Weight: 45 kg

DRUGS (11)
  1. TASIGNA [Suspect]
     Dosage: 400 MG/DAY
     Route: 048
     Dates: start: 20101109, end: 20101116
  2. URSO 250 [Concomitant]
     Indication: HEPATITIS C
     Dosage: 600 MG, UNK
     Dates: start: 20101012, end: 20101104
  3. FUROSEMIDE [Suspect]
     Dosage: 40 MG, UNK
     Route: 048
     Dates: start: 20100629, end: 20101015
  4. CELESTAMINE TAB [Concomitant]
     Indication: RASH
     Dosage: 2 DF, UNK
     Route: 048
     Dates: start: 20080516, end: 20101104
  5. TASIGNA [Suspect]
     Indication: CHRONIC MYELOID LEUKAEMIA
     Dosage: 800 MG DAILY
     Route: 048
     Dates: start: 20101013, end: 20101016
  6. NOVORAPID [Concomitant]
     Indication: DIABETES MELLITUS
     Dosage: 32 IU, UNK
     Route: 058
     Dates: start: 20100212
  7. DIOVAN [Suspect]
     Indication: HYPERTENSION
     Dosage: 80 MG, UNK
     Route: 048
     Dates: start: 20080516, end: 20101015
  8. PREDONINE [Concomitant]
     Indication: PROPHYLAXIS
     Dosage: 5 MG, UNK
     Route: 048
     Dates: start: 20101105
  9. ALOSITOL [Concomitant]
     Indication: HYPERURICAEMIA
     Dosage: 100 MG, UNK
     Route: 048
     Dates: start: 20080516, end: 20101227
  10. SHAKUYAKUKANZOUTOU [Concomitant]
     Dosage: UNK
     Route: 048
     Dates: start: 20101115
  11. LOXOPROFEN [Concomitant]
     Dosage: UNK
     Route: 048
     Dates: start: 20101115

REACTIONS (6)
  - MYALGIA [None]
  - HEPATIC FUNCTION ABNORMAL [None]
  - DIABETES MELLITUS [None]
  - HEPATITIS C [None]
  - HYPOTENSION [None]
  - HYPERGLYCAEMIA [None]
